FAERS Safety Report 21744613 (Version 1)
Quarter: 2022Q4

REPORT INFORMATION
  Report Type: Spontaneous
  Country: CN (occurrence: CN)
  Receive Date: 20221218
  Receipt Date: 20221218
  Transmission Date: 20230113
  Serious: Yes (Death, Life-Threatening, Hospitalization)
  Sender: FDA-Public Use
  Company Number: CN-STRIDES ARCOLAB LIMITED-2022SP016795

PATIENT
  Age: 2 Month
  Sex: Male

DRUGS (11)
  1. VANCOMYCIN [Suspect]
     Active Substance: VANCOMYCIN
     Indication: Antibiotic therapy
     Dosage: 50 MILLIGRAM, PER DAY
     Route: 065
  2. CASPOFUNGIN [Suspect]
     Active Substance: CASPOFUNGIN
     Indication: Pneumocystis jirovecii pneumonia
     Dosage: 14.4 MILLIGRAM, ONCE A DAY
     Route: 065
  3. CASPOFUNGIN [Suspect]
     Active Substance: CASPOFUNGIN
     Dosage: 50 MILLIGRAM, QOD
     Route: 065
  4. ACYCLOVIR [Suspect]
     Active Substance: ACYCLOVIR
     Indication: Pneumocystis jirovecii pneumonia
     Dosage: 10 MILLIGRAM/KILOGRAM, EVERY 8 HRS
     Route: 065
  5. MEROPENEM [Suspect]
     Active Substance: MEROPENEM
     Indication: Anti-infective therapy
     Dosage: UNK
     Route: 065
  6. MEROPENEM [Suspect]
     Active Substance: MEROPENEM
     Dosage: 100 MILLIGRAM, EVERY 8 HOURS
     Route: 065
  7. SULFAMETHOXAZOLE\TRIMETHOPRIM [Suspect]
     Active Substance: SULFAMETHOXAZOLE\TRIMETHOPRIM
     Indication: Antibiotic therapy
     Dosage: 120 MILLIGRAM/KILOGRAM, EVERY 6 HRS
     Route: 048
  8. CEFOPERAZONE SODIUM\SULBACTAM SODIUM [Suspect]
     Active Substance: CEFOPERAZONE SODIUM\SULBACTAM SODIUM
     Indication: Antibiotic therapy
     Dosage: 400 MILLIGRAM, EVERY 8 HRS
     Route: 065
  9. HEPARIN [Concomitant]
     Active Substance: HEPARIN SODIUM
     Indication: Anticoagulant therapy
     Dosage: 0.5 ML/H
     Route: 065
  10. METHYLPREDNISOLONE SODIUM SUCCINATE [Concomitant]
     Active Substance: METHYLPREDNISOLONE SODIUM SUCCINATE
     Indication: Cytomegalovirus infection
     Dosage: UNK
     Route: 065
  11. METHYLPREDNISOLONE SODIUM SUCCINATE [Concomitant]
     Active Substance: METHYLPREDNISOLONE SODIUM SUCCINATE
     Indication: Pneumonia viral
     Dosage: 10 MILLIGRAM, EVERY 12 HRS
     Route: 065

REACTIONS (2)
  - Drug ineffective [Fatal]
  - Off label use [Unknown]
